FAERS Safety Report 19463701 (Version 1)
Quarter: 2021Q2

REPORT INFORMATION
  Report Type: Spontaneous
  Country: US (occurrence: US)
  Receive Date: 20210625
  Receipt Date: 20210625
  Transmission Date: 20210717
  Serious: No
  Sender: FDA-Public Use
  Company Number: US-PERRIGO-20US014310

PATIENT
  Age: 13 Year
  Sex: Female
  Weight: 68.25 kg

DRUGS (2)
  1. LYSTEDA [Concomitant]
     Active Substance: TRANEXAMIC ACID
     Indication: HEAVY MENSTRUAL BLEEDING
     Dosage: UNK
     Route: 065
     Dates: start: 2019
  2. CLINDAMYCIN PHOSPHATE. [Suspect]
     Active Substance: CLINDAMYCIN PHOSPHATE
     Indication: ACNE
     Dosage: 1 PAD, BID
     Route: 061
     Dates: start: 201911, end: 202009

REACTIONS (1)
  - Rash [Recovered/Resolved]

NARRATIVE: CASE EVENT DATE: 202009
